FAERS Safety Report 17116381 (Version 6)
Quarter: 2020Q1

REPORT INFORMATION
  Report Type: Spontaneous
  Country: US (occurrence: US)
  Receive Date: 20191205
  Receipt Date: 20200318
  Transmission Date: 20200409
  Serious: Yes (Other)
  Sender: FDA-Public Use
  Company Number: US-009507513-1912USA000930

PATIENT
  Age: 73 Year
  Sex: Female
  Weight: 53.7 kg

DRUGS (10)
  1. FOSAMAX [Suspect]
     Active Substance: ALENDRONATE SODIUM
     Dosage: 70 MILLIGRAM, ONE TIME PER WEEK (EVERY SUNDAY BEFORE BREAKFAST)
     Route: 048
     Dates: start: 20191215
  2. FOSAMAX [Suspect]
     Active Substance: ALENDRONATE SODIUM
     Dosage: 70 MILLIGRAM, ONE TIME PER WEEK (EVERY SUNDAY BEFORE BREAKFAST)
     Route: 048
     Dates: start: 20191215
  3. FOSAMAX [Suspect]
     Active Substance: ALENDRONATE SODIUM
     Dosage: 70 MILLIGRAM, ONE TIME PER WEEK (EVERY SUNDAY BEFORE BREAKFAST)
     Route: 048
     Dates: start: 20191117, end: 201912
  4. CYANOCOBALAMIN (+) FOLIC ACID [Concomitant]
     Dosage: 1 TABLET DAILY UNDER TONGUE FOR 1 MINUTE THEN SWALLOW
     Route: 060
     Dates: start: 20190227
  5. ERGOCALCIFEROL. [Concomitant]
     Active Substance: ERGOCALCIFEROL
     Dosage: 1 CAPSULE EVERY SUNDAY AFTER LUNCH; STRENGTH: 1,250 MCG (50,000 UNIT)
     Route: 048
     Dates: start: 20190731
  6. CALCIUM (UNSPECIFIED) [Concomitant]
     Active Substance: CALCIUM
     Dosage: 1 TABLET, QW (EVERY SUNDAY); STRENGTH: 500 (UNITS NOT PROVIDED)
     Route: 048
     Dates: start: 20191017
  7. FOSAMAX [Suspect]
     Active Substance: ALENDRONATE SODIUM
     Indication: OSTEOPOROSIS
     Dosage: 70 MILLIGRAM, ONE TIME PER WEEK (EVERY SUNDAY BEFORE BREAKFAST)
     Route: 048
     Dates: start: 20191117, end: 201912
  8. ATORVASTATIN [Concomitant]
     Active Substance: ATORVASTATIN
     Dosage: 1 TABLET (40 MG), AT BEDTIME FOR 90 DAYS
     Route: 048
     Dates: start: 20191017
  9. CHOLECALCIFEROL [Concomitant]
     Active Substance: CHOLECALCIFEROL
     Dosage: 1 CAPSULE DAILY AFTER BREAKFAST, START A WEEK AFTER FINISHING HE HIGH DOSE VITAMIN D; STRENGTH: 4,00
     Route: 048
     Dates: start: 20191017
  10. FLONASE [Concomitant]
     Active Substance: FLUTICASONE PROPIONATE
     Dosage: USE 2 SPRAYS IN EACH NOSTRIL ONCE DAILY
     Route: 045
     Dates: start: 20190227

REACTIONS (32)
  - Carotid artery disease [Unknown]
  - Gastrooesophageal reflux disease [Unknown]
  - Magnetic resonance imaging abnormal [Unknown]
  - Light chain disease [Unknown]
  - Carotid arteriosclerosis [Unknown]
  - Fall [Unknown]
  - Memory impairment [Unknown]
  - Nervousness [Unknown]
  - Nasal septum deviation [Unknown]
  - Dysplastic naevus [Unknown]
  - Herpes zoster [Unknown]
  - Anosmia [Unknown]
  - Osteopenia [Unknown]
  - Rhinitis allergic [Unknown]
  - Osteoarthritis [Unknown]
  - Insomnia [Unknown]
  - Urinary incontinence [Unknown]
  - Vitamin D deficiency [Unknown]
  - Gastritis [Unknown]
  - Osteoporosis postmenopausal [Unknown]
  - Electrocardiogram PR shortened [Unknown]
  - Accidental overdose [Unknown]
  - Anxiety [Unknown]
  - Depression [Unknown]
  - Fatigue [Unknown]
  - Upper limb fracture [Unknown]
  - Hyperlipidaemia [Unknown]
  - Carotid artery stenosis [Unknown]
  - Muscle spasms [Recovered/Resolved]
  - Gastric ulcer [Unknown]
  - Electrocardiogram abnormal [Unknown]
  - Oesophagitis [Unknown]

NARRATIVE: CASE EVENT DATE: 2019
